FAERS Safety Report 12610273 (Version 2)
Quarter: 2016Q3

REPORT INFORMATION
  Report Type: Spontaneous
  Country: BR (occurrence: BR)
  Receive Date: 20160801
  Receipt Date: 20160816
  Transmission Date: 20161109
  Serious: Yes (Other)
  Sender: FDA-Public Use
  Company Number: BR-PFIZER INC-2016362654

PATIENT
  Age: 46 Year
  Sex: Male
  Weight: 90 kg

DRUGS (5)
  1. QUETIAPINE HEMIFUMARATE [Suspect]
     Active Substance: QUETIAPINE FUMARATE
     Indication: SCHIZOPHRENIA
     Dosage: ONE TABLET (100MG) IN THE MORNING AND ONE TABLET (200MG) AT NIGHT
     Route: 048
     Dates: start: 2016
  2. GEODON [Suspect]
     Active Substance: ZIPRASIDONE HYDROCHLORIDE\ZIPRASIDONE MESYLATE
     Indication: SCHIZOPHRENIA
     Dosage: 1 TABLET OF 80MG PER DAY
     Route: 048
     Dates: start: 1999, end: 201603
  3. PAMELOR [Concomitant]
     Active Substance: NORTRIPTYLINE HYDROCHLORIDE
     Indication: SCHIZOPHRENIA
     Dosage: TWO TABLETS PER DAY
  4. AKINETON [Suspect]
     Active Substance: BIPERIDEN HYDROCHLORIDE
     Indication: SCHIZOPHRENIA
     Dosage: TWO TABLETS PER DAY,STRENGTH 2 MG
     Route: 048
     Dates: start: 2016
  5. RISPERIDONE. [Concomitant]
     Active Substance: RISPERIDONE
     Indication: SCHIZOPHRENIA
     Dosage: TWO TABLETS PER DAY

REACTIONS (13)
  - Feeling abnormal [Recovered/Resolved]
  - Psychotic disorder [Unknown]
  - Aggression [Unknown]
  - Dysstasia [Recovered/Resolved]
  - Visual impairment [Unknown]
  - Movement disorder [Unknown]
  - Abnormal behaviour [Unknown]
  - Crying [Recovered/Resolved]
  - Hallucination, auditory [Unknown]
  - Personality disorder [Unknown]
  - Insomnia [Recovered/Resolved]
  - Hypophagia [Unknown]
  - Eyelid function disorder [Unknown]

NARRATIVE: CASE EVENT DATE: 2016
